FAERS Safety Report 6703017-7 (Version None)
Quarter: 2010Q2

REPORT INFORMATION
  Report Type: 
  Country: None (occurrence: None)
  Receive Date: 20100429
  Receipt Date: 20100429
  Transmission Date: 20101027
  Serious: Yes (Hospitalization)
  Sender: FDA-Public Use
  Company Number: None

PATIENT
  Age: 65 Year
  Sex: Male
  Weight: 59 kg

DRUGS (16)
  1. NOVOSEVEN [Suspect]
     Indication: POST PROCEDURAL HAEMORRHAGE
     Dosage: 5 MG ONCE IV
     Route: 042
     Dates: start: 20090519, end: 20090519
  2. PLAVIX [Concomitant]
  3. CODEINE PHOSPHATE AND ACETAMINOPHEN [Concomitant]
  4. TRAZODONE HCL [Concomitant]
  5. METOPROLOL [Concomitant]
  6. FUROSEMIDE [Concomitant]
  7. CITALOPRAM HYDROBROMIDE [Concomitant]
  8. AMIODARONE [Concomitant]
  9. WARFARIN [Concomitant]
  10. VANCOMYCIN [Concomitant]
  11. SIMVASTATIN [Concomitant]
  12. RIFAMPIN [Concomitant]
  13. LORAZEPAM [Concomitant]
  14. LISINOPRIL [Concomitant]
  15. CYCLOBENZAPRINE [Concomitant]
  16. LANSOPRAZOLE [Concomitant]

REACTIONS (2)
  - EMBOLIC STROKE [None]
  - POST PROCEDURAL STROKE [None]
